FAERS Safety Report 25599372 (Version 2)
Quarter: 2025Q3

REPORT INFORMATION
  Report Type: Report from Study
  Country: US (occurrence: US)
  Receive Date: 20250724
  Receipt Date: 20250730
  Transmission Date: 20251021
  Serious: Yes (Hospitalization)
  Sender: CHIESI
  Company Number: US-CHIESI-2025CHF05036

PATIENT
  Age: 26 Year
  Sex: Female

DRUGS (25)
  1. METRELEPTIN [Suspect]
     Active Substance: METRELEPTIN
     Indication: Congenital generalised lipodystrophy
     Dosage: 5 MILLIGRAM, QD
     Dates: start: 20201008, end: 20221018
  2. METRELEPTIN [Suspect]
     Active Substance: METRELEPTIN
     Dosage: 5 MILLIGRAM, BID
     Dates: start: 20221018
  3. LISINOPRIL [Concomitant]
     Active Substance: LISINOPRIL
     Indication: Hypertension
     Dosage: 30 MILLIGRAM, QD
     Route: 048
  4. FENOFIBRATE [Concomitant]
     Active Substance: FENOFIBRATE
     Indication: Hypertriglyceridaemia
     Dosage: 160 MILLIGRAM, QD
     Route: 048
     Dates: start: 20141018
  5. ERGOCALCIFEROL [Concomitant]
     Active Substance: ERGOCALCIFEROL
     Indication: Vitamin D decreased
     Dosage: 50000 INTERNATIONAL UNIT, QW
     Route: 048
  6. METFORMIN [Concomitant]
     Active Substance: METFORMIN HYDROCHLORIDE
     Indication: Diabetes mellitus
     Dosage: 1000 MILLIGRAM, BID
     Route: 048
     Dates: start: 20130520
  7. OMEGA-3-ACID ETHYL ESTER [Concomitant]
     Active Substance: OMEGA-3-ACID ETHYL ESTERS
     Indication: Hypertriglyceridaemia
     Dosage: 2 GRAM, BID
     Route: 048
     Dates: start: 2012
  8. KETOCONAZOLE [Concomitant]
     Active Substance: KETOCONAZOLE
     Indication: Seborrhoeic dermatitis
     Route: 061
     Dates: start: 20201012
  9. Carmol [Concomitant]
     Indication: Hyperkeratosis
     Dosage: 2 DOSAGE FORM, BID
     Route: 061
     Dates: start: 20210603
  10. PIOGLITAZONE [Concomitant]
     Active Substance: PIOGLITAZONE
     Indication: Diabetes mellitus
     Dosage: 30 MICROGRAM, QD
     Route: 048
     Dates: start: 20211028
  11. GLUCAGON [Concomitant]
     Active Substance: GLUCAGON
     Indication: Blood glucose decreased
     Route: 058
     Dates: start: 20221005
  12. ACETAMINOPHEN [Concomitant]
     Active Substance: ACETAMINOPHEN
     Indication: Pain
     Route: 048
     Dates: start: 20090901
  13. APIXABAN [Concomitant]
     Active Substance: APIXABAN
     Indication: Deep vein thrombosis
     Dosage: 5 MILLIGRAM, BID
     Route: 048
     Dates: start: 20220909
  14. ATORVASTATIN [Concomitant]
     Active Substance: ATORVASTATIN
     Indication: Hyperlipidaemia
     Dosage: 20 MILLIGRAM, QD
     Route: 048
     Dates: start: 20230608
  15. PIMECROLIMUS [Concomitant]
     Active Substance: PIMECROLIMUS
     Indication: Seborrhoeic dermatitis
     Dosage: 0.5 GRAM, BID
     Route: 061
     Dates: start: 20230928
  16. LAMOTRIGINE [Concomitant]
     Active Substance: LAMOTRIGINE
     Indication: Depression
     Dosage: 100 MILLIGRAM, BID
     Route: 048
     Dates: start: 20240103
  17. MAGNESIUM OXIDE [Concomitant]
     Active Substance: MAGNESIUM OXIDE
     Indication: Hypomagnesaemia
     Dosage: 500 MILLIGRAM, BID
     Route: 048
     Dates: start: 20240321
  18. GABAPENTIN [Concomitant]
     Active Substance: GABAPENTIN
     Indication: Neuropathy peripheral
     Dosage: 100 MILLIGRAM, TID
     Route: 048
     Dates: start: 20240131
  19. AMMONIUM LACTATE [Concomitant]
     Active Substance: AMMONIUM LACTATE
     Indication: Skin disorder
     Dosage: 1 DOSAGE FORM, BID
     Route: 061
     Dates: start: 20240312
  20. ALBUTEROL [Concomitant]
     Active Substance: ALBUTEROL
     Indication: Dyspnoea
     Dates: start: 20240429
  21. POLYETHYLENE GLYCOL [Concomitant]
     Active Substance: POLYETHYLENE GLYCOL
     Indication: Constipation
     Route: 048
     Dates: start: 20240903
  22. INSULIN NOS [Concomitant]
     Active Substance: INSULIN NOS
     Indication: Diabetes mellitus
     Dosage: 150 INTERNATIONAL UNIT, TID
     Route: 058
     Dates: start: 20250123
  23. DULAGLUTIDE [Concomitant]
     Active Substance: DULAGLUTIDE
     Indication: Diabetes mellitus
     Dosage: 3 MILLIGRAM, QW
     Route: 058
     Dates: start: 20250327
  24. EMPAGLIFLOZIN [Concomitant]
     Active Substance: EMPAGLIFLOZIN
     Indication: Diabetes mellitus
     Dosage: 25 MILLIGRAM, QD
     Route: 048
     Dates: start: 20250327
  25. INSULIN LISPRO [Concomitant]
     Active Substance: INSULIN LISPRO
     Indication: Diabetes mellitus
     Dosage: 20 INTERNATIONAL UNIT, TID
     Route: 058
     Dates: start: 202506

REACTIONS (1)
  - Sepsis [Recovered/Resolved]

NARRATIVE: CASE EVENT DATE: 20250625
